FAERS Safety Report 4548530-6 (Version None)
Quarter: 2005Q1

REPORT INFORMATION
  Report Type: 
  Country: None (occurrence: None)
  Receive Date: 20050105
  Receipt Date: 20050105
  Transmission Date: 20050727
  Serious: Yes (Hospitalization, Other)
  Sender: FDA-Public Use
  Company Number: None

PATIENT
  Age: 54 Year
  Sex: Male
  Weight: 117.9352 kg

DRUGS (2)
  1. CRESTOR [Suspect]
     Indication: BLOOD CHOLESTEROL INCREASED
     Dosage: 1 A DAY 10 MG 047
     Dates: start: 20040801, end: 20041101
  2. TARKA [Concomitant]

REACTIONS (3)
  - BACK PAIN [None]
  - FEELING ABNORMAL [None]
  - RENAL PAIN [None]
